FAERS Safety Report 10735894 (Version 2)
Quarter: 2017Q3

REPORT INFORMATION
  Report Type: Report from Study
  Country: US (occurrence: US)
  Receive Date: 20150126
  Receipt Date: 20170802
  Transmission Date: 20171127
  Serious: Yes (Other)
  Sender: FDA-Public Use
  Company Number: US-ROCHE-1525768

PATIENT
  Age: 10 Year
  Sex: Male
  Weight: 24.5 kg

DRUGS (2)
  1. NUTROPIN AQ [Suspect]
     Active Substance: SOMATROPIN
     Indication: GROWTH RETARDATION
     Route: 058
     Dates: end: 20141202
  2. NUTROPIN AQ [Suspect]
     Active Substance: SOMATROPIN
     Route: 058

REACTIONS (5)
  - Headache [Recovered/Resolved]
  - Intraocular pressure increased [Not Recovered/Not Resolved]
  - Hepatosplenomegaly [Unknown]
  - Idiopathic intracranial hypertension [Unknown]
  - Papilloedema [Unknown]

NARRATIVE: CASE EVENT DATE: 201411
